FAERS Safety Report 23138585 (Version 1)
Quarter: 2023Q4

REPORT INFORMATION
  Report Type: Report from Study
  Country: US (occurrence: US)
  Receive Date: 20231102
  Receipt Date: 20231102
  Transmission Date: 20240110
  Serious: No
  Sender: FDA-Public Use
  Company Number: US-ALXN-A202307936

PATIENT
  Sex: Female

DRUGS (2)
  1. STRENSIQ [Suspect]
     Active Substance: ASFOTASE ALFA
     Indication: Hypophosphatasia
     Dosage: UNK
     Route: 065
  2. STRENSIQ [Suspect]
     Active Substance: ASFOTASE ALFA
     Dosage: UNK
     Route: 065

REACTIONS (13)
  - Dry eye [Unknown]
  - Urticaria [Unknown]
  - Skin warm [Unknown]
  - Hypercholesterolaemia [Not Recovered/Not Resolved]
  - Blood urea increased [Unknown]
  - Blood bilirubin decreased [Unknown]
  - Aspartate aminotransferase decreased [Unknown]
  - Blood creatinine decreased [Unknown]
  - Alanine aminotransferase decreased [Unknown]
  - Superficial injury of eye [Unknown]
  - Pain in extremity [Unknown]
  - Needle issue [Unknown]
  - Off label use [Unknown]
